FAERS Safety Report 13439528 (Version 1)
Quarter: 2017Q2

REPORT INFORMATION
  Report Type: Spontaneous
  Country: US (occurrence: US)
  Receive Date: 20170413
  Receipt Date: 20170413
  Transmission Date: 20170830
  Serious: No
  Sender: FDA-Public Use
  Company Number: US-BIOGEN-2017BI00383355

PATIENT
  Age: 6 Year
  Sex: Female

DRUGS (2)
  1. SPINRAZA [Suspect]
     Active Substance: NUSINERSEN
     Indication: SPINAL MUSCULAR ATROPHY
     Dosage: FIRST LOADING DOSE
     Route: 037
     Dates: start: 20170308
  2. SPINRAZA [Suspect]
     Active Substance: NUSINERSEN
     Dosage: SECOND LOADIGN DOSE
     Route: 037
     Dates: start: 20170322

REACTIONS (4)
  - Pain in extremity [Recovered/Resolved]
  - Emotional disorder [Recovered/Resolved]
  - Musculoskeletal discomfort [Unknown]
  - Irritability [Recovered/Resolved]

NARRATIVE: CASE EVENT DATE: 20170325
